FAERS Safety Report 18128395 (Version 1)
Quarter: 2020Q3

REPORT INFORMATION
  Report Type: Spontaneous
  Country: US (occurrence: US)
  Receive Date: 20200808
  Receipt Date: 20200808
  Transmission Date: 20201103
  Serious: No
  Sender: FDA-Public Use
  Company Number: None

PATIENT
  Age: 63 Year
  Sex: Male
  Weight: 101.7 kg

DRUGS (14)
  1. ZITHROMAX [Concomitant]
     Active Substance: AZITHROMYCIN DIHYDRATE
  2. HYDROCORTISONE (PERIANAL) [Concomitant]
  3. FLOMAX [Concomitant]
     Active Substance: TAMSULOSIN HYDROCHLORIDE
  4. TYLENOL [Concomitant]
     Active Substance: ACETAMINOPHEN
  5. DECADRON [Concomitant]
     Active Substance: DEXAMETHASONE
  6. HUMALOG [Concomitant]
     Active Substance: INSULIN LISPRO
  7. REMDESIVIR. [Suspect]
     Active Substance: REMDESIVIR
     Indication: COVID-19
     Route: 040
  8. PROTONIX [Concomitant]
     Active Substance: PANTOPRAZOLE SODIUM
  9. ZINC SULFATE. [Concomitant]
     Active Substance: ZINC SULFATE
  10. NPH INSULIN [Concomitant]
     Active Substance: INSULIN BEEF
  11. ALBUTEROL. [Concomitant]
     Active Substance: ALBUTEROL
  12. SODIUM CHLORIDE NASAL SPRAY [Concomitant]
  13. CEFTRIAXONE. [Concomitant]
     Active Substance: CEFTRIAXONE
  14. LOVENOX [Concomitant]
     Active Substance: ENOXAPARIN SODIUM

REACTIONS (1)
  - Alanine aminotransferase increased [None]

NARRATIVE: CASE EVENT DATE: 20200808
